FAERS Safety Report 7204773-4 (Version None)
Quarter: 2010Q4

REPORT INFORMATION
  Report Type: 
  Country: None (occurrence: None)
  Receive Date: 20101217
  Receipt Date: 20101206
  Transmission Date: 20110411
  Serious: Yes (Hospitalization)
  Sender: FDA-Public Use
  Company Number: 10-001700

PATIENT
  Age: 23 Year
  Sex: Female
  Weight: 68 kg

DRUGS (2)
  1. LOESTRIN 24 FE [Suspect]
     Indication: ABORTION
     Dosage: 20/1000 UG, QD, ORAL ; 20/1000 UG, QD, ORAL
     Route: 048
     Dates: start: 20100601, end: 20100601
  2. LOESTRIN 24 FE [Suspect]
     Indication: ABORTION
     Dosage: 20/1000 UG, QD, ORAL ; 20/1000 UG, QD, ORAL
     Route: 048
     Dates: start: 20101101, end: 20101206

REACTIONS (5)
  - CHOLELITHOTOMY [None]
  - COITAL BLEEDING [None]
  - DRUG DOSE OMISSION [None]
  - METRORRHAGIA [None]
  - PAIN [None]
